FAERS Safety Report 7939488-8 (Version None)
Quarter: 2011Q4

REPORT INFORMATION
  Report Type: 
  Country: None (occurrence: None)
  Receive Date: 20111125
  Receipt Date: 20111116
  Transmission Date: 20120403
  Serious: Yes (Hospitalization, Other)
  Sender: FDA-Public Use
  Company Number: US-BAYER-201027021NA

PATIENT
  Age: 18 Year
  Sex: Female
  Weight: 81.633 kg

DRUGS (22)
  1. YASMIN [Suspect]
     Indication: PREMENSTRUAL SYNDROME
  2. ZANTAC [Concomitant]
     Indication: GASTRIC PH DECREASED
  3. MAGNESIUM HYDROXIDE TAB [Concomitant]
     Dosage: 30 ML, UNK
     Route: 048
     Dates: start: 20040517, end: 20040517
  4. DEMEROL [Concomitant]
     Dosage: UNK
     Route: 042
     Dates: start: 20040517, end: 20040517
  5. PROMETHAZINE [Concomitant]
     Dosage: 25 MG, UNK
     Route: 048
     Dates: start: 20040518, end: 20040518
  6. DILAUDID [Concomitant]
     Indication: PAIN
     Dosage: 0.5 MG, UNK
     Route: 042
     Dates: start: 20040516, end: 20040516
  7. MILK OF MAGNESIA TAB [Concomitant]
     Dosage: 30 ML, UNK
     Route: 048
     Dates: start: 20040517, end: 20040517
  8. PEPCID [Concomitant]
     Dosage: 20 MG, UNK
     Route: 042
     Dates: start: 20040516, end: 20040516
  9. PHENERGAN [Concomitant]
     Dosage: 12.5 MG, UNK
     Route: 042
     Dates: start: 20040516, end: 20040516
  10. HYDROMORPHONE HCL [Concomitant]
     Dosage: UNK
     Dates: start: 20040517, end: 20040517
  11. COLACE [Concomitant]
     Dosage: 200 MG, UNK
     Route: 048
     Dates: start: 20040517, end: 20040517
  12. REGLAN [Concomitant]
     Dosage: 10 MG, UNK
     Route: 042
     Dates: start: 20040516, end: 20040516
  13. YASMIN [Suspect]
     Indication: ORAL CONTRACEPTION
     Route: 048
     Dates: start: 20030101, end: 20040615
  14. DRUGS FOR FUNCTIONAL GASTROINTEST. DISORDERS [Concomitant]
     Dosage: UNK
     Route: 048
     Dates: start: 20040516, end: 20040516
  15. YASMIN [Suspect]
     Indication: ACNE
  16. HYDROCODONE BITARTRATE [Concomitant]
     Dosage: UNK
     Route: 048
     Dates: start: 20040518, end: 20040518
  17. LORTAB [Concomitant]
     Dosage: UNK
     Route: 048
     Dates: start: 20040517, end: 20040517
  18. ACETAMINOPHEN [Concomitant]
     Dosage: 650 MG, UNK
     Route: 054
     Dates: start: 20040517, end: 20040517
  19. PROMETHAZINE [Concomitant]
     Dosage: UNK
     Route: 042
     Dates: start: 20040518, end: 20040518
  20. LEVAQUIN [Concomitant]
     Dosage: 500 MG, UNK
     Route: 042
     Dates: start: 20040518, end: 20040518
  21. ACETAMINOPHEN [Concomitant]
  22. AMBIEN [Concomitant]
     Dosage: 5 MG, UNK
     Route: 048
     Dates: start: 20040517, end: 20040517

REACTIONS (8)
  - VOMITING [None]
  - ABDOMINAL PAIN UPPER [None]
  - ABDOMINAL PAIN [None]
  - CHOLECYSTITIS ACUTE [None]
  - NAUSEA [None]
  - CHOLELITHIASIS [None]
  - BILE DUCT OBSTRUCTION [None]
  - CHOLECYSTITIS CHRONIC [None]
